FAERS Safety Report 16002315 (Version 3)
Quarter: 2019Q2

REPORT INFORMATION
  Report Type: Spontaneous
  Country: CA (occurrence: CA)
  Receive Date: 20190225
  Receipt Date: 20190622
  Transmission Date: 20190711
  Serious: Yes (Other)
  Sender: FDA-Public Use
  Company Number: CA-BIOMARINAP-CA-2018-120189

PATIENT
  Sex: Female
  Weight: 23.3 kg

DRUGS (4)
  1. ADVIL [IBUPROFEN] [Concomitant]
     Active Substance: IBUPROFEN
     Indication: PYREXIA
  2. AERIUS                             /01009701/ [Concomitant]
     Active Substance: EBASTINE
     Indication: PREMEDICATION
     Dosage: 1.25 MILLIGRAM, SINGLE
     Route: 048
  3. NAGLAZYME [Suspect]
     Active Substance: GALSULFASE
     Indication: MUCOPOLYSACCHARIDOSIS VI
     Dosage: 1 MILLIGRAM/KILOGRAM, QW
     Route: 042
     Dates: start: 2012
  4. TYLENOL [Concomitant]
     Active Substance: ACETAMINOPHEN
     Indication: PYREXIA

REACTIONS (6)
  - Arthropathy [Not Recovered/Not Resolved]
  - Carpal tunnel syndrome [Recovering/Resolving]
  - Paraesthesia [Unknown]
  - Bone deformity [Unknown]
  - Joint range of motion decreased [Not Recovered/Not Resolved]
  - Joint stiffness [Unknown]
